FAERS Safety Report 9189312 (Version 1)
Quarter: 2013Q1

REPORT INFORMATION
  Report Type: Spontaneous
  Country: US (occurrence: None)
  Receive Date: 20130321
  Receipt Date: 20130321
  Transmission Date: 20140127
  Serious: Yes (Hospitalization)
  Sender: FDA-Public Use
  Company Number: None

PATIENT
  Age: 69 Year
  Sex: Male
  Weight: 141 kg

DRUGS (1)
  1. VANCOMYCIN [Suspect]
     Indication: ENDOCARDITIS
     Route: 042
     Dates: start: 20121124, end: 20121207

REACTIONS (1)
  - Rash [None]
